FAERS Safety Report 14922793 (Version 1)
Quarter: 2018Q2

REPORT INFORMATION
  Report Type: Report from Study
  Country: US (occurrence: US)
  Receive Date: 20180522
  Receipt Date: 20180522
  Transmission Date: 20180711
  Serious: Yes (Hospitalization, Other)
  Sender: FDA-Public Use
  Company Number: US-ROCHE-2126401

PATIENT
  Age: 49 Year
  Sex: Female

DRUGS (9)
  1. INOTUZUMAB OZOGAMICIN [Suspect]
     Active Substance: INOTUZUMAB OZOGAMICIN
     Indication: ACUTE LYMPHOCYTIC LEUKAEMIA
     Dosage: REGIMEN A: OVER 1 HOUR ON DAY 3 (C2D17); REGIMEN B: ON DAY 2 OR 3 (CYCLES 2 AND 4 ONLY)?MOST RECENT
     Route: 042
     Dates: start: 20180125
  2. CYTARABINE. [Suspect]
     Active Substance: CYTARABINE
     Indication: ACUTE LYMPHOCYTIC LEUKAEMIA
     Dosage: 0.5 G/M2 OVER 3 HOURS TWICE A DAY X 4 DOSES ON DAYS 2 AND 3
     Route: 042
  3. METHOTREXATE SODIUM. [Suspect]
     Active Substance: METHOTREXATE SODIUM
     Indication: ACUTE LYMPHOCYTIC LEUKAEMIA
     Dosage: OVER 2 HOURS ON DAY 1
     Route: 042
  4. RITUXIMAB. [Suspect]
     Active Substance: RITUXIMAB
     Indication: ACUTE LYMPHOCYTIC LEUKAEMIA
     Dosage: REGIMEN A: ON DAY 2 AND DAY 8 (CYCLES 1 AND 3 ONLY) AND REGIMEN B: ON DAY 2 AND 8 OF CYCLES 2 AND 4
     Route: 042
  5. MESNA. [Suspect]
     Active Substance: MESNA
     Indication: ACUTE LYMPHOCYTIC LEUKAEMIA
     Dosage: REGIMEN A: DAILY OVER 24 HOURS FOR 3 DAYS ON DAYS 1-3
     Route: 042
  6. CYCLOPHOSPHAMIDE. [Suspect]
     Active Substance: CYCLOPHOSPHAMIDE
     Indication: ACUTE LYMPHOCYTIC LEUKAEMIA
     Dosage: REGIMEN A: OVER 3 HOURS TWICE A DAY ON DAYS 1-3
     Route: 042
  7. DEXAMETHASONE PHOSPHATE [Suspect]
     Active Substance: DEXAMETHASONE PHOSPHATE
     Indication: ACUTE LYMPHOCYTIC LEUKAEMIA
     Dosage: REGIMEN A: DAILY FOR 4 DAYS ON DAYS 1-4 AND DAYS 11-14
     Route: 042
  8. PEGFILGRASTIM [Suspect]
     Active Substance: PEGFILGRASTIM
     Indication: PRODUCT USED FOR UNKNOWN INDICATION
     Dosage: REGIMEN A: 6 MG ON DAY 4 UNTIL RECOVERY OF GRANULOCYTE COUNT AND REGIMEN B: 6 MG ON DAY 4 UNTIL RECO
     Route: 058
  9. VINCRISTINE SULFATE. [Suspect]
     Active Substance: VINCRISTINE SULFATE
     Indication: ACUTE LYMPHOCYTIC LEUKAEMIA
     Dosage: REGIMEN A: DAY 1 AND DAY 8
     Route: 042

REACTIONS (1)
  - Upper gastrointestinal haemorrhage [Recovered/Resolved]

NARRATIVE: CASE EVENT DATE: 20180331
